FAERS Safety Report 8496507-0 (Version None)
Quarter: 2012Q3

REPORT INFORMATION
  Report Type: 
  Country: None (occurrence: None)
  Receive Date: 20120709
  Receipt Date: 20120628
  Transmission Date: 20120928
  Serious: Yes (Hospitalization)
  Sender: FDA-Public Use
  Company Number: JP-ACTELION-A-CH2012-68002

PATIENT
  Sex: Female
  Weight: 36 kg

DRUGS (13)
  1. MIZORIBINE [Concomitant]
  2. ETHYL ICOSAPENTATE [Concomitant]
  3. TRACLEER [Suspect]
     Indication: PULMONARY ARTERIAL HYPERTENSION
     Dosage: 62.5 MG, BID
     Route: 048
     Dates: start: 20120529, end: 20120628
  4. TRACLEER [Suspect]
     Dosage: 62.5 MG, QD
     Route: 048
     Dates: start: 20120516, end: 20120528
  5. OLMESARTAN MEDOXOMIL [Concomitant]
  6. BERAPROST SODIUM [Concomitant]
  7. PREDNISOLONE [Concomitant]
  8. MAGNESIUM OXIDE [Concomitant]
  9. LANSOPRAZOLE [Concomitant]
  10. OXYGEN [Concomitant]
  11. BROTIZOLAM [Concomitant]
  12. AMLODIPINE BESYLATE [Concomitant]
  13. ERYTHROMYCIN ETHYLSUCCINATE [Concomitant]

REACTIONS (5)
  - HEPATIC FUNCTION ABNORMAL [None]
  - ALANINE AMINOTRANSFERASE INCREASED [None]
  - BLOOD ALKALINE PHOSPHATASE INCREASED [None]
  - GAMMA-GLUTAMYLTRANSFERASE INCREASED [None]
  - ASPARTATE AMINOTRANSFERASE INCREASED [None]
